FAERS Safety Report 18187979 (Version 2)
Quarter: 2020Q3

REPORT INFORMATION
  Report Type: Report from Study
  Country: FR (occurrence: FR)
  Receive Date: 20200824
  Receipt Date: 20200908
  Transmission Date: 20201103
  Serious: Yes (Hospitalization)
  Sender: FDA-Public Use
  Company Number: FR-EISAI MEDICAL RESEARCH-EC-2020-079251

PATIENT
  Age: 66 Year
  Sex: Male
  Weight: 96 kg

DRUGS (12)
  1. QUESTRAN [Concomitant]
     Active Substance: CHOLESTYRAMINE
     Dates: start: 20200526
  2. HYDROCORTISONE. [Concomitant]
     Active Substance: HYDROCORTISONE
     Dates: start: 20200530
  3. TANGANIL [Concomitant]
     Active Substance: ACETYLLEUCINE
     Dates: start: 20200527
  4. LENVATINIB [Suspect]
     Active Substance: LENVATINIB
     Indication: HEPATOCELLULAR CARCINOMA
     Dosage: 12MG (BODY WEIGHT (BW) } OR EQUAL 60) OR 8 MG (BW{60 KG)
     Route: 048
     Dates: start: 20200121, end: 2020
  5. PEMBROLIZUMAB. [Suspect]
     Active Substance: PEMBROLIZUMAB
     Indication: HEPATOCELLULAR CARCINOMA
     Route: 041
     Dates: start: 20200121, end: 20200707
  6. PEMBROLIZUMAB. [Suspect]
     Active Substance: PEMBROLIZUMAB
     Route: 041
     Dates: start: 20200728, end: 20200728
  7. ZYMAD [Concomitant]
     Active Substance: CHOLECALCIFEROL
     Dates: start: 20200528
  8. INSULIN [Concomitant]
     Active Substance: INSULIN NOS
     Dates: start: 20200417
  9. PROPRANOLOL [Concomitant]
     Active Substance: PROPRANOLOL HYDROCHLORIDE
     Dates: start: 20200526
  10. GALVUS [Concomitant]
     Active Substance: VILDAGLIPTIN
     Dates: start: 20200421
  11. METFORMIN [Concomitant]
     Active Substance: METFORMIN HYDROCHLORIDE
     Dates: start: 20200529
  12. REPAGLINIDE. [Concomitant]
     Active Substance: REPAGLINIDE
     Dates: start: 20200317

REACTIONS (1)
  - Pancreatitis [Not Recovered/Not Resolved]

NARRATIVE: CASE EVENT DATE: 20200818
